FAERS Safety Report 21348703 (Version 1)
Quarter: 2022Q3

REPORT INFORMATION
  Report Type: Spontaneous
  Country: RO (occurrence: RO)
  Receive Date: 20220919
  Receipt Date: 20220919
  Transmission Date: 20221027
  Serious: Yes (Other)
  Sender: FDA-Public Use
  Company Number: RO-ASTELLAS-2022US032734

PATIENT
  Age: 70 Year
  Sex: Male

DRUGS (2)
  1. XOSPATA [Suspect]
     Active Substance: GILTERITINIB
     Indication: Acute myelomonocytic leukaemia
     Dosage: 120 MG, ONCE DAILY (3 CP/DAY)
     Route: 065
     Dates: start: 20220630, end: 20220707
  2. XOSPATA [Suspect]
     Active Substance: GILTERITINIB
     Dosage: 80 MG, ONCE DAILY (2 CP/DAY )
     Route: 065
     Dates: start: 20220727, end: 20220808

REACTIONS (5)
  - Haematotoxicity [Recovering/Resolving]
  - Pancytopenia [Recovering/Resolving]
  - Thrombocytopenia [Recovering/Resolving]
  - Anaemia [Recovering/Resolving]
  - Hepatic cytolysis [Recovering/Resolving]
